FAERS Safety Report 4570641-X (Version None)
Quarter: 2005Q1

REPORT INFORMATION
  Report Type: 
  Country: None (occurrence: None)
  Receive Date: 20050204
  Receipt Date: 20050131
  Transmission Date: 20050727
  Serious: Yes (Hospitalization, Other)
  Sender: FDA-Public Use
  Company Number: US-JNJFOC-20050200201

PATIENT
  Age: 44 Year
  Sex: Female

DRUGS (4)
  1. DURAGESIC [Suspect]
     Route: 062
  2. MAVIK [Concomitant]
     Indication: BLOOD PRESSURE
     Dosage: 1 DAILY
     Route: 049
  3. AVALIDE [Concomitant]
     Route: 049
  4. AVALIDE [Concomitant]
     Dosage: 1 DAILY
     Route: 049

REACTIONS (4)
  - ANXIETY [None]
  - BLOOD GLUCOSE INCREASED [None]
  - DRUG DEPENDENCE [None]
  - NERVOUSNESS [None]
